FAERS Safety Report 11643101 (Version 4)
Quarter: 2016Q1

REPORT INFORMATION
  Report Type: Spontaneous
  Country: US (occurrence: US)
  Receive Date: 20151020
  Receipt Date: 20160224
  Transmission Date: 20160525
  Serious: Yes (Other)
  Sender: FDA-Public Use
  Company Number: US-BAYER-2015-445118

PATIENT
  Age: 21 Year
  Sex: Female
  Weight: 136.5 kg

DRUGS (2)
  1. MIRENA [Suspect]
     Active Substance: LEVONORGESTREL
     Indication: CONTRACEPTION
     Dosage: 20 MCG/24HR, CONT
     Route: 015
     Dates: start: 20120313, end: 20140731
  2. MIRENA [Suspect]
     Active Substance: LEVONORGESTREL
     Indication: MENORRHAGIA

REACTIONS (13)
  - Drug ineffective [None]
  - Abdominal pain [Not Recovered/Not Resolved]
  - Depression [None]
  - Emotional distress [None]
  - Infertility female [None]
  - Uterine polyp [None]
  - Embedded device [Not Recovered/Not Resolved]
  - Pregnancy with contraceptive device [None]
  - Abortion spontaneous [None]
  - Device issue [None]
  - Injury [Not Recovered/Not Resolved]
  - Anxiety [None]
  - Abdominal discomfort [Not Recovered/Not Resolved]

NARRATIVE: CASE EVENT DATE: 2013
